FAERS Safety Report 10141468 (Version 3)
Quarter: 2014Q4

REPORT INFORMATION
  Report Type: Report from Study
  Country: FR (occurrence: FR)
  Receive Date: 20140429
  Receipt Date: 20141014
  Transmission Date: 20150528
  Serious: Yes (Hospitalization)
  Sender: FDA-Public Use
  Company Number: PHHY2013FR155722

PATIENT
  Sex: Male
  Weight: 70 kg

DRUGS (4)
  1. ICL670A [Suspect]
     Active Substance: DEFERASIROX
     Dosage: 1000 MG, QD (14 MG/KG/JOUR)
     Dates: start: 20100610
  2. ICL670A [Suspect]
     Active Substance: DEFERASIROX
     Dosage: UNK
     Dates: start: 20120213
  3. ICL670A [Suspect]
     Active Substance: DEFERASIROX
     Dosage: UNK
     Dates: start: 20120531
  4. ICL670A [Suspect]
     Active Substance: DEFERASIROX
     Indication: THALASSAEMIA BETA
     Dosage: 1250 MG, QD (20 MG/KG/JOUR)
     Dates: start: 20070115

REACTIONS (2)
  - Parotitis [Recovered/Resolved]
  - Pharyngitis [Recovered/Resolved]

NARRATIVE: CASE EVENT DATE: 20100420
